FAERS Safety Report 16285173 (Version 1)
Quarter: 2019Q2

REPORT INFORMATION
  Report Type: Spontaneous
  Country: US (occurrence: US)
  Receive Date: 20190508
  Receipt Date: 20190508
  Transmission Date: 20190711
  Serious: Yes (Death, Hospitalization, Other)
  Sender: FDA-Public Use
  Company Number: US-009507513-1905USA002200

PATIENT
  Age: 69 Year
  Sex: Male

DRUGS (1)
  1. KEYTRUDA [Suspect]
     Active Substance: PEMBROLIZUMAB
     Indication: OESOPHAGEAL CANCER METASTATIC
     Dosage: 1 DOSAGE FORM
     Route: 042
     Dates: start: 20190313

REACTIONS (11)
  - Fear [Unknown]
  - Vomiting [Unknown]
  - Malignant neoplasm progression [Unknown]
  - Ageusia [Unknown]
  - Asthenia [Unknown]
  - Product use in unapproved indication [Unknown]
  - Eating disorder [Unknown]
  - Foaming at mouth [Unknown]
  - Death [Fatal]
  - Malaise [Unknown]
  - Gait disturbance [Unknown]

NARRATIVE: CASE EVENT DATE: 201903
